FAERS Safety Report 18294639 (Version 1)
Quarter: 2020Q3

REPORT INFORMATION
  Report Type: Spontaneous
  Country: US (occurrence: US)
  Receive Date: 20200922
  Receipt Date: 20200922
  Transmission Date: 20201103
  Serious: Yes (Death)
  Sender: FDA-Public Use
  Company Number: US-PFIZER INC-2020361094

PATIENT
  Age: 36 Year
  Sex: Male

DRUGS (8)
  1. ZINC SULFATE. [Suspect]
     Active Substance: ZINC SULFATE
     Indication: COVID-19
     Dosage: UNK
  2. HYDROXYCHLOROQUINE [Suspect]
     Active Substance: HYDROXYCHLOROQUINE
     Indication: COVID-19
     Dosage: UNK
  3. SOLU?MEDROL [Suspect]
     Active Substance: METHYLPREDNISOLONE SODIUM SUCCINATE
     Indication: COVID-19
     Dosage: UNK (HIGH?DOSE)
  4. INSULIN [Concomitant]
     Active Substance: INSULIN NOS
     Indication: TYPE 1 DIABETES MELLITUS
  5. AZITHROMYCIN ANHYDROUS. [Suspect]
     Active Substance: AZITHROMYCIN ANHYDROUS
     Indication: COVID-19
     Dosage: UNK
  6. ASCORBIC ACID. [Suspect]
     Active Substance: ASCORBIC ACID
     Indication: COVID-19
     Dosage: UNK
  7. TOCILIZUMAB. [Suspect]
     Active Substance: TOCILIZUMAB
     Indication: COVID-19
     Dosage: 1 DOSE
  8. INSULIN [Concomitant]
     Active Substance: INSULIN NOS
     Indication: DIABETIC KETOACIDOSIS
     Dosage: UNK (INFUSION)

REACTIONS (2)
  - Drug ineffective for unapproved indication [Fatal]
  - Off label use [Fatal]
